FAERS Safety Report 20992163 (Version 1)
Quarter: 2022Q2

REPORT INFORMATION
  Report Type: Spontaneous
  Country: JP (occurrence: JP)
  Receive Date: 20220622
  Receipt Date: 20220622
  Transmission Date: 20220721
  Serious: Yes (Other)
  Sender: FDA-Public Use
  Company Number: JP-JNJFOC-20220633169

PATIENT
  Age: 38 Year
  Sex: Female

DRUGS (14)
  1. OPSUMIT [Suspect]
     Active Substance: MACITENTAN
     Indication: Pulmonary hypertension
     Route: 048
  2. TRACLEER [Suspect]
     Active Substance: BOSENTAN
     Indication: Pulmonary hypertension
     Route: 048
  3. TRACLEER [Suspect]
     Active Substance: BOSENTAN
     Indication: Pulmonary hypertension
     Route: 048
  4. TRACLEER [Suspect]
     Active Substance: BOSENTAN
     Indication: Pulmonary hypertension
     Route: 048
  5. BERAPROST SODIUM [Concomitant]
     Active Substance: BERAPROST SODIUM
     Route: 048
  6. BERAPROST SODIUM [Concomitant]
     Active Substance: BERAPROST SODIUM
     Route: 048
  7. BERAPROST SODIUM [Concomitant]
     Active Substance: BERAPROST SODIUM
     Route: 048
  8. TADALAFIL [Concomitant]
     Active Substance: TADALAFIL
     Route: 048
  9. TADALAFIL [Concomitant]
     Active Substance: TADALAFIL
     Route: 048
  10. FUROSEMIDE [Concomitant]
     Active Substance: FUROSEMIDE
     Route: 065
  11. RIOCIGUAT [Concomitant]
     Active Substance: RIOCIGUAT
     Route: 048
  12. RIOCIGUAT [Concomitant]
     Active Substance: RIOCIGUAT
     Route: 048
  13. UPTRAVI [Concomitant]
     Active Substance: SELEXIPAG
     Route: 048
  14. UPTRAVI [Concomitant]
     Active Substance: SELEXIPAG
     Route: 048

REACTIONS (1)
  - Interstitial lung disease [Unknown]
